FAERS Safety Report 4889544-6 (Version None)
Quarter: 2006Q1

REPORT INFORMATION
  Report Type: 
  Country: None (occurrence: None)
  Receive Date: 20060120
  Receipt Date: 20060110
  Transmission Date: 20060701
  Serious: Yes (Hospitalization)
  Sender: FDA-Public Use
  Company Number: GBWYE290210JAN06

PATIENT
  Age: 19 Year

DRUGS (2)
  1. MINOCIN [Suspect]
     Indication: ACNE
  2. IBUPROFEN [Concomitant]

REACTIONS (3)
  - JOINT SWELLING [None]
  - RASH [None]
  - SWELLING [None]
